FAERS Safety Report 9354233 (Version 1)
Quarter: 2013Q2

REPORT INFORMATION
  Report Type: Report from Study
  Country: US (occurrence: US)
  Receive Date: 20130618
  Receipt Date: 20130618
  Transmission Date: 20140414
  Serious: Yes (Other)
  Sender: FDA-Public Use
  Company Number: US-B.I. PHARMACEUTICALS,INC./RIDGEFIELD-2013-BI-17164GD

PATIENT
  Sex: 0

DRUGS (3)
  1. PRADAXA [Suspect]
     Indication: CEREBROVASCULAR ACCIDENT PROPHYLAXIS
  2. PRADAXA [Suspect]
     Indication: ATRIAL FIBRILLATION
  3. LOW-MOLECULAR-WEIGHT HEPARIN [Suspect]
     Indication: ANTICOAGULANT THERAPY
     Dosage: BRIDGING TO ACHIEVE INR }2.0

REACTIONS (1)
  - Haemorrhage [Recovered/Resolved]
